FAERS Safety Report 6834761-9 (Version None)
Quarter: 2010Q3

REPORT INFORMATION
  Report Type: 
  Country: None (occurrence: None)
  Receive Date: 20100712
  Receipt Date: 20070419
  Transmission Date: 20110219
  Serious: No
  Sender: FDA-Public Use
  Company Number: US-PFIZER INC-2007032744

PATIENT
  Sex: Female
  Weight: 72 kg

DRUGS (11)
  1. CHANTIX [Suspect]
     Indication: SMOKING CESSATION THERAPY
     Dates: start: 20070409
  2. THYROID TAB [Concomitant]
  3. TRAZODONE HYDROCHLORIDE [Concomitant]
  4. CALCITRIOL [Concomitant]
  5. ATENOLOL [Concomitant]
  6. ULTRAM [Concomitant]
  7. PREVACID [Concomitant]
     Indication: GASTROOESOPHAGEAL REFLUX DISEASE
  8. CYANOCOBALAMIN [Concomitant]
  9. MULTI-VITAMINS [Concomitant]
  10. FISH OIL [Concomitant]
  11. ACIDOPHILUS [Concomitant]

REACTIONS (2)
  - ABDOMINAL DISCOMFORT [None]
  - NAUSEA [None]
